FAERS Safety Report 6155004-8 (Version None)
Quarter: 2009Q2

REPORT INFORMATION
  Report Type: 
  Country: None (occurrence: None)
  Receive Date: 20090410
  Receipt Date: 20090330
  Transmission Date: 20091009
  Serious: Yes (Hospitalization)
  Sender: FDA-Public Use
  Company Number: GXKR2009ES04022

PATIENT
  Age: 72 Year
  Sex: Male

DRUGS (5)
  1. ACETAMINOPHEN [Suspect]
     Indication: RESPIRATORY TRACT INFECTION
  2. IBUPROFEN [Suspect]
     Indication: RESPIRATORY TRACT INFECTION
  3. AMOXICILLIN [Suspect]
     Indication: RESPIRATORY TRACT INFECTION
  4. CLARITHROMYCIN [Suspect]
     Indication: RESPIRATORY TRACT INFECTION
  5. IMATINIB MESYLATE [Suspect]
     Indication: CHRONIC MYELOID LEUKAEMIA
     Dosage: 400 MG, DAY
     Dates: start: 20040701, end: 20070201

REACTIONS (6)
  - ANAL ABSCESS [None]
  - APLASTIC ANAEMIA [None]
  - BLOOD CULTURE POSITIVE [None]
  - ENTEROCOCCAL INFECTION [None]
  - FUNGAL INFECTION [None]
  - PANCYTOPENIA [None]
